FAERS Safety Report 24037532 (Version 1)
Quarter: 2024Q3

REPORT INFORMATION
  Report Type: Report from Study
  Country: US (occurrence: US)
  Receive Date: 20240702
  Receipt Date: 20240702
  Transmission Date: 20241017
  Serious: Yes (Other)
  Sender: ABBVIE
  Company Number: US-ABBVIE-5821483

PATIENT
  Sex: Female

DRUGS (1)
  1. SKYRIZI [Suspect]
     Active Substance: RISANKIZUMAB-RZAA
     Indication: Crohn^s disease
     Route: 042
     Dates: start: 20240404

REACTIONS (6)
  - Loss of consciousness [Unknown]
  - Syncope [Recovered/Resolved]
  - Feeling hot [Unknown]
  - Dizziness [Unknown]
  - Apnoea [Unknown]
  - Cyanosis [Unknown]

NARRATIVE: CASE EVENT DATE: 20240101
